FAERS Safety Report 5311243-7 (Version None)
Quarter: 2007Q2

REPORT INFORMATION
  Report Type: 
  Country: None (occurrence: None)
  Receive Date: 20070430
  Receipt Date: 20070420
  Transmission Date: 20071010
  Serious: Yes (Other)
  Sender: FDA-Public Use
  Company Number: PHMT2007CA01082

PATIENT
  Age: 71 Year
  Sex: Female

DRUGS (4)
  1. MYFORTIC [Suspect]
     Indication: KIDNEY TRANSPLANT REJECTION
     Dosage: UNK, UNK
     Route: 048
     Dates: start: 20050101
  2. NEORAL [Concomitant]
  3. PREDNISONE TAB [Concomitant]
  4. DRUG THERAPY NOS [Concomitant]
     Dosage: UNSPECIFIED MEDICATIONS

REACTIONS (4)
  - IMPATIENCE [None]
  - INSOMNIA [None]
  - NERVOUSNESS [None]
  - PANIC ATTACK [None]
